FAERS Safety Report 11218184 (Version 5)
Quarter: 2015Q3

REPORT INFORMATION
  Report Type: Spontaneous
  Country: US (occurrence: US)
  Receive Date: 20150625
  Receipt Date: 20150818
  Transmission Date: 20151125
  Serious: Yes (Other)
  Sender: FDA-Public Use
  Company Number: US-ELI_LILLY_AND_COMPANY-US201506001596

PATIENT
  Age: 70 Year
  Sex: Male
  Weight: 92.97 kg

DRUGS (10)
  1. TYVASO [Suspect]
     Active Substance: TREPROSTINIL
     Dosage: 12 BREATHS, UNKNOWN
     Route: 055
     Dates: start: 20150630
  2. OPSUMIT [Concomitant]
     Active Substance: MACITENTAN
     Indication: PRODUCT USED FOR UNKNOWN INDICATION
     Dosage: UNK, UNKNOWN
     Route: 065
  3. MAGNESIUM [Concomitant]
     Active Substance: MAGNESIUM
     Dosage: UNK, UNKNOWN
     Route: 065
  4. TYVASO [Suspect]
     Active Substance: TREPROSTINIL
     Dosage: 6-12 BREATHS, QID
     Route: 055
     Dates: end: 20150806
  5. ADCIRCA [Suspect]
     Active Substance: TADALAFIL
     Indication: PRODUCT USED FOR UNKNOWN INDICATION
     Dosage: UNK, UNKNOWN
     Route: 065
  6. TYVASO [Suspect]
     Active Substance: TREPROSTINIL
     Indication: PULMONARY ARTERIAL HYPERTENSION
     Dosage: 3-9 BREATHS, QID
     Route: 055
     Dates: start: 20150428
  7. TYVASO [Suspect]
     Active Substance: TREPROSTINIL
     Dosage: 9 BREATHS, UNKNOWN
     Route: 055
  8. ADEMPAS [Concomitant]
     Active Substance: RIOCIGUAT
     Indication: PRODUCT USED FOR UNKNOWN INDICATION
     Dosage: UNK, UNKNOWN
     Route: 065
  9. O2                                 /00150301/ [Concomitant]
     Active Substance: OXYGEN
     Indication: PRODUCT USED FOR UNKNOWN INDICATION
     Dosage: UNK, UNKNOWN
     Route: 065
  10. POTASSIUM [Concomitant]
     Active Substance: POTASSIUM
     Dosage: UNK, UNKNOWN
     Route: 065

REACTIONS (17)
  - Lichen planus [Unknown]
  - Headache [Unknown]
  - Hypotension [Unknown]
  - Neck mass [Unknown]
  - Oropharyngeal pain [Unknown]
  - Dizziness [Unknown]
  - Throat irritation [Unknown]
  - Cough [Unknown]
  - Muscular weakness [Unknown]
  - Muscle spasms [Unknown]
  - Glossitis [Unknown]
  - Glossodynia [Unknown]
  - Chest pain [Unknown]
  - Dyspnoea [Not Recovered/Not Resolved]
  - Fatigue [Unknown]
  - Diarrhoea [Unknown]
  - Pain [Unknown]

NARRATIVE: CASE EVENT DATE: 20150529
